FAERS Safety Report 7259639-0 (Version None)
Quarter: 2011Q1

REPORT INFORMATION
  Report Type: 
  Country: None (occurrence: None)
  Receive Date: 20110130
  Receipt Date: 20101007
  Transmission Date: 20110831
  Serious: No
  Sender: FDA-Public Use
  Company Number: US-ABBOTT-10P-163-0639111-00

PATIENT
  Sex: Female
  Weight: 94.432 kg

DRUGS (13)
  1. ASPIRIN [Concomitant]
     Indication: PRODUCT USED FOR UNKNOWN INDICATION
     Route: 048
  2. FOLIC ACID [Concomitant]
     Indication: VITAMIN SUPPLEMENTATION
     Route: 048
     Dates: start: 20100101
  3. MULTIPLE VITAMINS [Concomitant]
     Indication: PRODUCT USED FOR UNKNOWN INDICATION
     Route: 048
  4. METHOTREXATE [Concomitant]
     Indication: ANKYLOSING SPONDYLITIS
     Route: 048
  5. HUMIRA [Suspect]
     Indication: ANKYLOSING SPONDYLITIS
  6. ASCORBIC ACID [Concomitant]
     Indication: PRODUCT USED FOR UNKNOWN INDICATION
     Route: 048
  7. SYNTHROID [Concomitant]
     Indication: PRODUCT USED FOR UNKNOWN INDICATION
  8. METFORMIN [Concomitant]
     Indication: DIABETES MELLITUS
  9. HUMIRA [Suspect]
     Indication: RHEUMATOID ARTHRITIS
     Route: 058
  10. MOBIC [Concomitant]
     Indication: RHEUMATOID ARTHRITIS
  11. METFORMIN [Concomitant]
  12. PROTONIX [Concomitant]
     Indication: GASTROOESOPHAGEAL REFLUX DISEASE
     Route: 048
  13. LOVAZA [Concomitant]
     Indication: PRODUCT USED FOR UNKNOWN INDICATION

REACTIONS (11)
  - WEIGHT INCREASED [None]
  - VISION BLURRED [None]
  - HEADACHE [None]
  - MALAISE [None]
  - BONE DENSITY DECREASED [None]
  - DRUG INEFFECTIVE [None]
  - HYPERTENSION [None]
  - ARTHRALGIA [None]
  - VISUAL IMPAIRMENT [None]
  - DIZZINESS [None]
  - BLOOD GLUCOSE INCREASED [None]
